FAERS Safety Report 4751009-X (Version None)
Quarter: 2005Q3

REPORT INFORMATION
  Report Type: 
  Country: None (occurrence: None)
  Receive Date: 20050824
  Receipt Date: 20050822
  Transmission Date: 20060218
  Serious: Yes (Hospitalization)
  Sender: FDA-Public Use
  Company Number: GB-BOEHRINGER INGELHEIM PHARMACEUTICALS, INC.-2005-UK-01575UK

PATIENT
  Age: 42 Year
  Sex: Female
  Weight: 70 kg

DRUGS (4)
  1. NEVIRAPINE [Suspect]
     Indication: HIV INFECTION
     Dosage: 200MG TWICE DAILY
     Route: 048
     Dates: start: 20050621, end: 20050728
  2. COMBIVIR [Concomitant]
     Indication: HIV INFECTION
     Dosage: 1 TWICE DAILY
     Route: 048
     Dates: start: 20050101
  3. EFAVIRENZ [Concomitant]
     Indication: HIV INFECTION
     Dosage: 600 MG ONCE DAILY
     Route: 048
     Dates: start: 20050101, end: 20050621
  4. ACYCLOVIR [Concomitant]
     Indication: HIV INFECTION
     Dosage: 400 MG TWICE DAILY
     Route: 048
     Dates: start: 20050101

REACTIONS (2)
  - MUCOSAL INFLAMMATION [None]
  - STEVENS-JOHNSON SYNDROME [None]
